FAERS Safety Report 20994452 (Version 2)
Quarter: 2022Q3

REPORT INFORMATION
  Report Type: Spontaneous
  Country: DE (occurrence: DE)
  Receive Date: 20220622
  Receipt Date: 20220627
  Transmission Date: 20221026
  Serious: Yes (Hospitalization)
  Sender: FDA-Public Use
  Company Number: DE-NOVARTISPH-NVSC2022DE142246

PATIENT
  Sex: Female

DRUGS (4)
  1. MOMETASONE [Suspect]
     Active Substance: MOMETASONE
     Indication: Nasal congestion
     Dosage: 1 PUFF, BID (2 X DAILY / 1-0-1)
     Route: 065
     Dates: start: 2022, end: 2022
  2. MOMETASONE [Suspect]
     Active Substance: MOMETASONE
     Dosage: 1 PUFF, QID (4 X DAILY)
     Route: 065
     Dates: start: 2022, end: 2022
  3. MOMETASONE [Suspect]
     Active Substance: MOMETASONE
     Dosage: 1 PUFF, Q8H
     Route: 065
     Dates: start: 2022, end: 202206
  4. LEVOCETIRIZINE [Suspect]
     Active Substance: LEVOCETIRIZINE
     Indication: Seasonal allergy
     Dosage: 5 MG, QD
     Route: 065

REACTIONS (9)
  - Nasal obstruction [Unknown]
  - Pyrexia [Unknown]
  - Nasal congestion [Unknown]
  - Mucosal dryness [Unknown]
  - Mucosal inflammation [Unknown]
  - Mucosal haemorrhage [Unknown]
  - Sleep disorder [Not Recovered/Not Resolved]
  - Off label use [Recovered/Resolved]
  - Therapeutic product effect incomplete [Unknown]

NARRATIVE: CASE EVENT DATE: 20220101
